FAERS Safety Report 9294676 (Version 1)
Quarter: 2013Q2

REPORT INFORMATION
  Report Type: Spontaneous
  Country: BR (occurrence: BR)
  Receive Date: 20130517
  Receipt Date: 20130517
  Transmission Date: 20140414
  Serious: Yes (Death)
  Sender: FDA-Public Use
  Company Number: BR-PFIZER INC-2012029850

PATIENT
  Age: 67 Year
  Sex: Male
  Weight: 69.9 kg

DRUGS (4)
  1. SUTENT [Suspect]
     Indication: RENAL CELL CARCINOMA
     Dosage: 50 MG CYCLE 4 FOR 2
     Route: 048
     Dates: start: 20111212
  2. ANLODIBAL [Concomitant]
     Indication: HYPERTENSION
     Dosage: 2.5 MG (HALF TABLET OF 5 MG), UNK
     Route: 048
  3. ANLODIBAL [Concomitant]
     Dosage: 2.5 MG, UNK
  4. ZOMETA [Concomitant]
     Indication: BONE DISORDER
     Dosage: ONE APPLICATION EVERY 28 DAYS

REACTIONS (6)
  - Death [Fatal]
  - Yellow skin [Not Recovered/Not Resolved]
  - Dysgeusia [Not Recovered/Not Resolved]
  - Skin atrophy [Unknown]
  - Skin sensitisation [Unknown]
  - Skin exfoliation [Unknown]
